FAERS Safety Report 5221430-4 (Version None)
Quarter: 2007Q1

REPORT INFORMATION
  Report Type: 
  Country: None (occurrence: None)
  Receive Date: 20070126
  Receipt Date: 20070115
  Transmission Date: 20070707
  Serious: Yes (Other)
  Sender: FDA-Public Use
  Company Number: JP-PFIZER INC-2007004780

PATIENT
  Age: 32 Year
  Sex: Male

DRUGS (4)
  1. ZITHROMAC [Suspect]
     Indication: BRONCHITIS
     Route: 048
     Dates: start: 20070104, end: 20070106
  2. PARLODEL [Suspect]
     Route: 048
  3. ZOLOFT [Concomitant]
     Route: 048
  4. DEPROMEL [Concomitant]
     Route: 048

REACTIONS (3)
  - BRONCHITIS [None]
  - CLONIC CONVULSION [None]
  - LOSS OF CONSCIOUSNESS [None]
